FAERS Safety Report 14339041 (Version 1)
Quarter: 2017Q4

REPORT INFORMATION
  Report Type: Spontaneous
  Country: US (occurrence: US)
  Receive Date: 20171230
  Receipt Date: 20171230
  Transmission Date: 20180321
  Serious: No
  Sender: FDA-Public Use
  Company Number: US-BIOGEN-2017BI00501955

PATIENT
  Age: 38 Year
  Sex: Female

DRUGS (1)
  1. TECFIDERA [Suspect]
     Active Substance: DIMETHYL FUMARATE
     Indication: MULTIPLE SCLEROSIS
     Route: 065

REACTIONS (9)
  - Hyperaesthesia [Unknown]
  - Pain [Unknown]
  - Hypoaesthesia [Unknown]
  - Band sensation [Unknown]
  - Muscle spasms [Unknown]
  - Burning sensation [Unknown]
  - Nuclear magnetic resonance imaging abnormal [Unknown]
  - Eye pain [Unknown]
  - Fatigue [Unknown]
